FAERS Safety Report 6166848-0 (Version None)
Quarter: 2009Q2

REPORT INFORMATION
  Report Type: 
  Country: None (occurrence: None)
  Receive Date: 20090424
  Receipt Date: 20090415
  Transmission Date: 20091009
  Serious: Yes (Other)
  Sender: FDA-Public Use
  Company Number: A0687232A

PATIENT
  Sex: Male
  Weight: 2.9 kg

DRUGS (11)
  1. PAXIL [Suspect]
     Indication: DEPRESSION
     Dosage: 40MG PER DAY
     Dates: start: 19900101
  2. VITAMIN TAB [Concomitant]
  3. TERBUTALINE SULFATE [Concomitant]
  4. DEPAKOTE [Concomitant]
  5. SEROQUEL [Concomitant]
  6. ANAFRANIL [Concomitant]
  7. MORPHINE [Concomitant]
     Dates: start: 20031101
  8. LITHIUM CARBONATE [Concomitant]
     Dates: start: 20031201
  9. TYLENOL [Concomitant]
  10. CEFZIL [Concomitant]
  11. SERAX [Concomitant]

REACTIONS (7)
  - ACQUIRED EPILEPTIC APHASIA [None]
  - AUTISM [None]
  - DEVELOPMENTAL DELAY [None]
  - DRUG EXPOSURE DURING PREGNANCY [None]
  - ENCEPHALOPATHY [None]
  - LUNG DISORDER [None]
  - UMBILICAL CORD PROLAPSE [None]
